FAERS Safety Report 7496846-6 (Version None)
Quarter: 2011Q2

REPORT INFORMATION
  Report Type: 
  Country: None (occurrence: None)
  Receive Date: 20110516
  Receipt Date: 20110507
  Transmission Date: 20111010
  Serious: Yes (Death, Other)
  Sender: FDA-Public Use
  Company Number: GB-ACCORD-008913

PATIENT
  Age: 54 Year
  Sex: Male

DRUGS (6)
  1. IDARUBICIN HCL [Suspect]
     Indication: ACUTE MYELOID LEUKAEMIA
  2. CYTARABINE [Suspect]
     Indication: ACUTE MYELOID LEUKAEMIA
     Dosage: 30.00-MG-3.00 TIMES PER-1.0WEEKS / INTRATHECAL
     Route: 037
  3. METHOTREXATE [Suspect]
     Indication: ACUTE MYELOID LEUKAEMIA
     Dosage: 12.50-MG-3.00 TIMES PER-1.0WEEKS / INTRATHECAL
     Route: 037
  4. ETOPOSIDE [Suspect]
     Indication: ACUTE MYELOID LEUKAEMIA
  5. AMPHOTERICIN B [Concomitant]
  6. HYDROCORTISONE SODIUM SUCCINATE [Suspect]
     Indication: ACUTE MYELOID LEUKAEMIA
     Dosage: 12.50-MG-3.00 TIMES PER-1.0WEEKS / INTRATHECAL
     Route: 037

REACTIONS (4)
  - FUNGAL SEPSIS [None]
  - FEBRILE NEUTROPENIA [None]
  - SEPTIC SHOCK [None]
  - OFF LABEL USE [None]
